FAERS Safety Report 6773059-4 (Version None)
Quarter: 2010Q2

REPORT INFORMATION
  Report Type: 
  Country: None (occurrence: None)
  Receive Date: 20100616
  Receipt Date: 20100610
  Transmission Date: 20101027
  Serious: Yes (Hospitalization)
  Sender: FDA-Public Use
  Company Number: SE-PFIZER INC-2010059454

PATIENT
  Age: 75 Year
  Sex: Male
  Weight: 86.8 kg

DRUGS (3)
  1. BLINDED *NO SUBJECT DRUG [Suspect]
     Indication: CARDIAC FAILURE
     Dosage: UNK
  2. BLINDED *PLACEBO [Suspect]
     Indication: CARDIAC FAILURE
     Dosage: UNK
  3. EPLERENONE [Suspect]
     Indication: CARDIAC FAILURE
     Dosage: UNK

REACTIONS (1)
  - MUSCULOSKELETAL PAIN [None]
